FAERS Safety Report 8872858 (Version 1)
Quarter: 2012Q4

REPORT INFORMATION
  Report Type: 
  Country: US (occurrence: US)
  Receive Date: 20121026
  Receipt Date: 20121026
  Transmission Date: 20130627
  Serious: No
  Sender: FDA-Public Use
  Company Number: US-AMGEN-USASP2012051058

PATIENT
  Age: 58 Year
  Sex: Female
  Weight: 86.17 kg

DRUGS (9)
  1. ENBREL [Suspect]
     Indication: PRODUCT USED FOR UNKNOWN INDICATION
     Dosage: 50 mg, qwk
     Route: 058
  2. SERTRALINE [Concomitant]
     Dosage: 25 mg, UNK
  3. RAMIPRIL [Concomitant]
     Dosage: 1.25 mg, UNK
  4. METHOTREXATE [Concomitant]
     Dosage: 2.5 mg, UNK
  5. PREDNISONE [Concomitant]
     Dosage: 1 mg, UNK
  6. CALCIUM VITAMIN D [Concomitant]
  7. FOLIC ACID [Concomitant]
     Dosage: UNK
  8. HYDROCHLOROTHIAZIDE W/TRIAMTERENE [Concomitant]
     Dosage: 25-37.5
  9. CALCIUM VITAMIN D [Concomitant]
     Dosage: UNK

REACTIONS (1)
  - Herpes zoster [Recovered/Resolved]
